FAERS Safety Report 8087891-0 (Version None)
Quarter: 2012Q1

REPORT INFORMATION
  Report Type: 
  Country: None (occurrence: None)
  Receive Date: 20120128
  Receipt Date: 20110406
  Transmission Date: 20120608
  Serious: No
  Sender: FDA-Public Use
  Company Number: US-ABBOTT-11P-163-0718075-00

PATIENT
  Sex: Male
  Weight: 59.02 kg

DRUGS (4)
  1. HUMIRA [Suspect]
     Indication: JUVENILE ARTHRITIS
     Dates: start: 20090101, end: 20110101
  2. CELEBREX [Concomitant]
     Indication: JUVENILE ARTHRITIS
  3. CIMZIA [Suspect]
     Indication: JUVENILE ARTHRITIS
  4. CONCERTA [Concomitant]
     Indication: ATTENTION DEFICIT/HYPERACTIVITY DISORDER

REACTIONS (3)
  - RASH [None]
  - DRUG INEFFECTIVE [None]
  - ARTHRITIS [None]
